FAERS Safety Report 5664105-X (Version None)
Quarter: 2008Q1

REPORT INFORMATION
  Report Type: 
  Country: None (occurrence: None)
  Receive Date: 20080314
  Receipt Date: 20080306
  Transmission Date: 20080703
  Serious: Yes (Other)
  Sender: FDA-Public Use
  Company Number: US-JNJFOC-20080301745

PATIENT
  Age: 9 Year
  Sex: Male
  Weight: 29.48 kg

DRUGS (2)
  1. TYLENOL [Suspect]
     Indication: HEADACHE
     Route: 048
  2. TYLENOL [Suspect]
     Indication: PYREXIA
     Route: 048

REACTIONS (4)
  - DELUSION [None]
  - DIZZINESS [None]
  - HYPERHIDROSIS [None]
  - INCORRECT DOSE ADMINISTERED [None]
